FAERS Safety Report 23108757 (Version 1)
Quarter: 2023Q4

REPORT INFORMATION
  Report Type: Spontaneous
  Country: US (occurrence: None)
  Receive Date: 20231024
  Receipt Date: 20231024
  Transmission Date: 20240109
  Serious: Yes (Hospitalization)
  Sender: FDA-Public Use
  Company Number: None

PATIENT
  Age: 79 Year
  Sex: Male

DRUGS (2)
  1. FENTANYL CITRATE [Suspect]
     Active Substance: FENTANYL CITRATE
     Dosage: OTHER STRENGTH : 50MCG/ML;?FREQUENCY : ONCE;?
     Route: 042
     Dates: start: 20230404, end: 20230404
  2. MIDAZOLAM HYDROCHLORIDE [Suspect]
     Active Substance: MIDAZOLAM HYDROCHLORIDE

REACTIONS (3)
  - Hypotension [None]
  - Respiratory acidosis [None]
  - Respiratory failure [None]

NARRATIVE: CASE EVENT DATE: 20230404
